FAERS Safety Report 6377853-3 (Version None)
Quarter: 2009Q3

REPORT INFORMATION
  Report Type: 
  Country: None (occurrence: None)
  Receive Date: 20090925
  Receipt Date: 20090319
  Transmission Date: 20100115
  Serious: No
  Sender: FDA-Public Use
  Company Number: US-ABBOTT-09P-163-0558800-00

PATIENT
  Age: 55 Year
  Sex: Male
  Weight: 67.192 kg

DRUGS (4)
  1. TRICOR [Suspect]
     Indication: HIGH DENSITY LIPOPROTEIN DECREASED
     Route: 048
     Dates: start: 20060101, end: 20090101
  2. ASPIRIN [Concomitant]
     Indication: HYPERTENSION
     Route: 048
  3. ATENOLOL [Concomitant]
     Indication: HYPERTENSION
     Route: 048
  4. COZAAR [Concomitant]
     Indication: HYPERTENSION
     Route: 048

REACTIONS (4)
  - BLOOD CALCIUM INCREASED [None]
  - NEPHROLITHIASIS [None]
  - THYROID FUNCTION TEST ABNORMAL [None]
  - VITAMIN D DECREASED [None]
